FAERS Safety Report 21369599 (Version 5)
Quarter: 2022Q4

REPORT INFORMATION
  Report Type: Spontaneous
  Country: IT (occurrence: IT)
  Receive Date: 20220923
  Receipt Date: 20221110
  Transmission Date: 20230113
  Serious: Yes (Hospitalization, Other)
  Sender: FDA-Public Use
  Company Number: IT-NOVARTISPH-NVSC2022IT214522

PATIENT
  Age: 94 Year
  Sex: Male
  Weight: 45 kg

DRUGS (8)
  1. CEFTAZIDIME [Suspect]
     Active Substance: CEFTAZIDIME
     Indication: Productive cough
     Dosage: UNK
     Route: 065
  2. CEFTAZIDIME [Suspect]
     Active Substance: CEFTAZIDIME
     Indication: Sputum purulent
  3. CLARITHROMYCIN [Suspect]
     Active Substance: CLARITHROMYCIN
     Indication: Productive cough
     Dosage: UNK
     Route: 065
  4. CLARITHROMYCIN [Suspect]
     Active Substance: CLARITHROMYCIN
     Indication: Sputum purulent
  5. CEFEPIME [Suspect]
     Active Substance: CEFEPIME HYDROCHLORIDE
     Indication: Pseudomonas infection
     Dosage: 2 G, BID, EVERY 12 HOURS
     Route: 042
  6. CEFEPIME [Suspect]
     Active Substance: CEFEPIME HYDROCHLORIDE
     Dosage: 1 G, BID,  EVERY 12 HOURS
     Route: 042
  7. CEFEPIME [Suspect]
     Active Substance: CEFEPIME HYDROCHLORIDE
     Dosage: D8 FROM START OF CEFEPIME,INITIAL DOSE RESTORED
     Route: 042
  8. OXYGEN [Concomitant]
     Active Substance: OXYGEN
     Indication: Respiratory failure
     Dosage: 2 LITRE PER MIN
     Route: 065

REACTIONS (16)
  - Hypoxia [Recovering/Resolving]
  - Cerebral atrophy [Recovering/Resolving]
  - White matter lesion [Recovering/Resolving]
  - Psychomotor hyperactivity [Recovering/Resolving]
  - Decreased appetite [Recovering/Resolving]
  - Malaise [Recovering/Resolving]
  - Delirium [Recovering/Resolving]
  - Renal failure [Recovering/Resolving]
  - Azotaemia [Recovering/Resolving]
  - Mental impairment [Recovering/Resolving]
  - Agitation [Recovering/Resolving]
  - Leukocytosis [Unknown]
  - Lymphopenia [Unknown]
  - Condition aggravated [Recovering/Resolving]
  - Drug ineffective [Unknown]
  - Nervous system disorder [Recovering/Resolving]
